FAERS Safety Report 8050038-0 (Version None)
Quarter: 2012Q1

REPORT INFORMATION
  Report Type: 
  Country: None (occurrence: None)
  Receive Date: 20120117
  Receipt Date: 20120111
  Transmission Date: 20120608
  Serious: Yes (Death)
  Sender: FDA-Public Use
  Company Number: US-SANOFI-AVENTIS-2012SA002017

PATIENT
  Age: 63 Year
  Sex: Male

DRUGS (1)
  1. MULTAQ [Suspect]
     Route: 048
     Dates: end: 20120101

REACTIONS (1)
  - DEATH [None]
